FAERS Safety Report 15143640 (Version 2)
Quarter: 2018Q3

REPORT INFORMATION
  Report Type: Spontaneous
  Country: CA (occurrence: CA)
  Receive Date: 20180713
  Receipt Date: 20180917
  Transmission Date: 20181010
  Serious: Yes (Death)
  Sender: FDA-Public Use
  Company Number: CA-PFIZER INC-2018264630

PATIENT
  Age: 42 Year
  Sex: Male

DRUGS (1)
  1. BESPONSA [Suspect]
     Active Substance: INOTUZUMAB OZOGAMICIN
     Indication: PRECURSOR B-LYMPHOBLASTIC LYMPHOMA REFRACTORY
     Dosage: 1 MG, WEEKLY 3/4 (EVERY 4 WEEKS). DIRECTIONS: 3 OUT OF 4 WEEKS
     Route: 042

REACTIONS (1)
  - Neoplasm progression [Fatal]
